FAERS Safety Report 9603055 (Version 2)
Quarter: 2014Q4

REPORT INFORMATION
  Report Type: Spontaneous
  Country: US (occurrence: US)
  Receive Date: 20131007
  Receipt Date: 20141126
  Transmission Date: 20150529
  Serious: Yes (Life-Threatening, Hospitalization, Other)
  Sender: FDA-Public Use
  Company Number: US-BRISTOL-MYERS SQUIBB COMPANY-19458090

PATIENT
  Age: 61 Year
  Sex: Female
  Weight: 70.75 kg

DRUGS (14)
  1. BYETTA [Suspect]
     Active Substance: EXENATIDE
     Indication: TYPE 2 DIABETES MELLITUS
     Dosage: NO OF DOSES:3??09JUL13-10JUL13=10 MCG BID
     Route: 058
     Dates: start: 20130709, end: 20130712
  2. PROZAC [Concomitant]
     Active Substance: FLUOXETINE HYDROCHLORIDE
  3. FLUOXETINE [Concomitant]
     Active Substance: FLUOXETINE\FLUOXETINE HYDROCHLORIDE
     Route: 048
  4. ZOCOR [Concomitant]
     Active Substance: SIMVASTATIN
  5. PRENATAL VITAMIN [Concomitant]
     Active Substance: VITAMINS
  6. COUMADIN [Concomitant]
     Active Substance: WARFARIN SODIUM
     Route: 048
  7. WELLBUTRIN [Concomitant]
     Active Substance: BUPROPION HYDROCHLORIDE
  8. LEVOTHYROXINE [Concomitant]
     Active Substance: LEVOTHYROXINE
  9. LANTUS [Concomitant]
     Active Substance: INSULIN GLARGINE
     Route: 058
  10. VITAMIN D [Concomitant]
     Active Substance: CHOLECALCIFEROL
  11. AMIODARONE [Concomitant]
     Active Substance: AMIODARONE
     Route: 048
  12. CALCIUM [Concomitant]
     Active Substance: CALCIUM
  13. CLONAZEPAM. [Concomitant]
     Active Substance: CLONAZEPAM
     Route: 048
  14. AMBIEN [Concomitant]
     Active Substance: ZOLPIDEM TARTRATE
     Route: 048

REACTIONS (10)
  - Acute respiratory failure [Recovering/Resolving]
  - Atrial fibrillation [Recovering/Resolving]
  - Acute kidney injury [Recovered/Resolved]
  - Metabolic acidosis [Recovering/Resolving]
  - Electrocardiogram QT prolonged [Recovering/Resolving]
  - Vomiting [Recovering/Resolving]
  - Mental status changes [Recovering/Resolving]
  - Hyperkalaemia [Recovering/Resolving]
  - Nausea [Recovering/Resolving]
  - Hypovolaemia [Recovering/Resolving]

NARRATIVE: CASE EVENT DATE: 201307
